FAERS Safety Report 24805054 (Version 1)
Quarter: 2025Q1

REPORT INFORMATION
  Report Type: Spontaneous
  Country: US (occurrence: None)
  Receive Date: 20250103
  Receipt Date: 20250103
  Transmission Date: 20250409
  Serious: Yes (Other)
  Sender: FDA-CTU
  Company Number: None

PATIENT
  Age: 60 Year
  Sex: Female

DRUGS (1)
  1. ICATIBANT [Suspect]
     Active Substance: ICATIBANT ACETATE
     Indication: Complement deficiency disease

REACTIONS (8)
  - Diarrhoea [None]
  - Vomiting [None]
  - Tremor [None]
  - Mass [None]
  - Headache [None]
  - Pyrexia [None]
  - Fatigue [None]
  - Pharyngeal swelling [None]
